FAERS Safety Report 5325839-X (Version None)
Quarter: 2007Q2

REPORT INFORMATION
  Report Type: 
  Country: None (occurrence: None)
  Receive Date: 20070510
  Receipt Date: 20070503
  Transmission Date: 20071010
  Serious: Yes (Hospitalization)
  Sender: FDA-Public Use
  Company Number: 2007-02215

PATIENT
  Age: 53 Year
  Sex: Female

DRUGS (3)
  1. TRAMADOL HCL [Suspect]
     Indication: ANALGESIC EFFECT
     Dosage: SEE IMAGE
     Route: 048
  2. PAROXETINE HCL [Suspect]
     Indication: DEPRESSION
     Dosage: 4 TABLET, DAILY, ORAL
     Route: 048
  3. ALPRAZOLAM [Concomitant]

REACTIONS (4)
  - DRUG INTERACTION POTENTIATION [None]
  - DRUG TOXICITY [None]
  - MANIA [None]
  - SEROTONIN SYNDROME [None]
